APPROVED DRUG PRODUCT: RISPERIDONE
Active Ingredient: RISPERIDONE
Strength: 1MG
Dosage Form/Route: TABLET;ORAL
Application: A076879 | Product #003 | TE Code: AB
Applicant: DR REDDYS LABORATORIES LTD
Approved: Oct 24, 2008 | RLD: No | RS: No | Type: RX